FAERS Safety Report 16388250 (Version 1)
Quarter: 2019Q2

REPORT INFORMATION
  Report Type: Report from Study
  Country: US (occurrence: US)
  Receive Date: 20190604
  Receipt Date: 20190604
  Transmission Date: 20190711
  Serious: Yes (Other)
  Sender: FDA-Public Use
  Company Number: US-TESAROUBC-2018-TSO1025-US

PATIENT
  Age: 68 Year
  Sex: Female

DRUGS (9)
  1. ZEJULA [Suspect]
     Active Substance: NIRAPARIB
     Indication: OVARIAN CANCER
     Dosage: 200 MG, QD
     Route: 048
     Dates: start: 20180916, end: 20180924
  2. LYRICA [Suspect]
     Active Substance: PREGABALIN
     Indication: PRODUCT USED FOR UNKNOWN INDICATION
     Dosage: UNK
  3. VITAMIN D [Concomitant]
     Active Substance: VITAMIN D NOS
     Indication: PRODUCT USED FOR UNKNOWN INDICATION
  4. PREVACID [Concomitant]
     Active Substance: LANSOPRAZOLE
     Indication: PRODUCT USED FOR UNKNOWN INDICATION
  5. POTASSIUM [Concomitant]
     Active Substance: POTASSIUM
     Indication: PRODUCT USED FOR UNKNOWN INDICATION
  6. ZITHROMAX [Concomitant]
     Active Substance: AZITHROMYCIN DIHYDRATE
     Indication: PRODUCT USED FOR UNKNOWN INDICATION
     Dosage: UNK
  7. CELEXA [Concomitant]
     Active Substance: CITALOPRAM HYDROBROMIDE
     Indication: PRODUCT USED FOR UNKNOWN INDICATION
  8. BUPROPION. [Concomitant]
     Active Substance: BUPROPION
     Indication: PRODUCT USED FOR UNKNOWN INDICATION
  9. ZEJULA [Suspect]
     Active Substance: NIRAPARIB
     Dosage: 100 MG, QPM WITH AND WITHOUT FOOD
     Route: 048
     Dates: start: 20181015

REACTIONS (22)
  - Tremor [Unknown]
  - Muscular weakness [Unknown]
  - Peripheral swelling [Recovered/Resolved]
  - Blood creatinine increased [Unknown]
  - Nausea [Unknown]
  - Nausea [Recovered/Resolved]
  - Asthenia [Not Recovered/Not Resolved]
  - Fall [Unknown]
  - Tumour marker increased [Not Recovered/Not Resolved]
  - Confusional state [Unknown]
  - Fatigue [Not Recovered/Not Resolved]
  - Renal failure [Unknown]
  - Hypokinesia [Unknown]
  - Thirst [Unknown]
  - Cough [Unknown]
  - Carbohydrate antigen 125 increased [Unknown]
  - Insomnia [Unknown]
  - Emotional disorder [Unknown]
  - Headache [Unknown]
  - Platelet count decreased [Not Recovered/Not Resolved]
  - Constipation [Recovered/Resolved]
  - Depressed mood [Unknown]

NARRATIVE: CASE EVENT DATE: 201809
